FAERS Safety Report 6922008-4 (Version None)
Quarter: 2010Q3

REPORT INFORMATION
  Report Type: 
  Country: None (occurrence: None)
  Receive Date: 20100812
  Receipt Date: 20100802
  Transmission Date: 20110219
  Serious: Yes (Other)
  Sender: FDA-Public Use
  Company Number: US-JNJCH-2010017948

PATIENT
  Age: 61 Year
  Sex: Female
  Weight: 65.3 kg

DRUGS (1)
  1. LISTERINE WHITENING QUICK DISSOLVING STRIPS [Suspect]
     Indication: DENTAL CARE
     Dosage: TEXT:1 STRIP 2X PER DAY
     Route: 048
     Dates: start: 20100727, end: 20100730

REACTIONS (2)
  - APPLICATION SITE BURN [None]
  - APPLICATION SITE VESICLES [None]
